FAERS Safety Report 20625872 (Version 1)
Quarter: 2022Q1

REPORT INFORMATION
  Report Type: Report from Study
  Country: CO (occurrence: CO)
  Receive Date: 20220323
  Receipt Date: 20220323
  Transmission Date: 20220423
  Serious: Yes (Hospitalization, Other)
  Sender: FDA-Public Use
  Company Number: CO-ABBVIE-22K-036-4323498-00

PATIENT
  Age: 61 Year
  Sex: Female
  Weight: 37 kg

DRUGS (2)
  1. HUMIRA [Suspect]
     Active Substance: ADALIMUMAB
     Indication: Colitis ulcerative
     Route: 058
     Dates: start: 20181017, end: 20220226
  2. COVID-19 VACCINE [Concomitant]
     Indication: COVID-19
     Dosage: SECOND DOSE
     Route: 030
     Dates: start: 2022, end: 2022

REACTIONS (15)
  - Abdominal pain [Recovering/Resolving]
  - Vomiting [Recovering/Resolving]
  - Dehydration [Recovering/Resolving]
  - Eating disorder [Recovering/Resolving]
  - Crohn^s disease [Recovering/Resolving]
  - Enteritis [Recovering/Resolving]
  - Fistula [Not Recovered/Not Resolved]
  - Infected fistula [Recovering/Resolving]
  - Sleep disorder [Recovering/Resolving]
  - Asthenia [Recovering/Resolving]
  - Somnolence [Recovering/Resolving]
  - COVID-19 [Recovered/Resolved]
  - Influenza [Recovered/Resolved]
  - Asthenia [Recovered/Resolved]
  - Laboratory test abnormal [Recovering/Resolving]

NARRATIVE: CASE EVENT DATE: 20220122
